FAERS Safety Report 15721694 (Version 1)
Quarter: 2018Q4

REPORT INFORMATION
  Report Type: Report from Study
  Country: CN (occurrence: CN)
  Receive Date: 20181214
  Receipt Date: 20181214
  Transmission Date: 20190205
  Serious: Yes (Other)
  Sender: FDA-Public Use
  Company Number: CN-ROCHE-2226608

PATIENT
  Age: 48 Year
  Sex: Male

DRUGS (1)
  1. BEVACIZUMAB. [Suspect]
     Active Substance: BEVACIZUMAB
     Indication: NON-SMALL CELL LUNG CANCER
     Route: 041
     Dates: start: 20170313

REACTIONS (5)
  - Hepatic function abnormal [Recovered/Resolved]
  - Bone marrow failure [Recovered/Resolved]
  - White blood cell count decreased [Recovered/Resolved]
  - Gastrointestinal disorder [Recovered/Resolved]
  - Radiation oesophagitis [Not Recovered/Not Resolved]

NARRATIVE: CASE EVENT DATE: 20170313
